FAERS Safety Report 9646297 (Version 1)
Quarter: 2013Q4

REPORT INFORMATION
  Report Type: Spontaneous
  Country: IT (occurrence: IT)
  Receive Date: 20131025
  Receipt Date: 20131025
  Transmission Date: 20140711
  Serious: Yes (Life-Threatening, Hospitalization)
  Sender: FDA-Public Use
  Company Number: IT-MYLANLABS-2013S1023295

PATIENT
  Age: 84 Year
  Sex: Female

DRUGS (4)
  1. BISOPROLOL HEMIFUMARATE [Suspect]
     Indication: HYPERTENSION
     Route: 048
     Dates: start: 20120101, end: 20130803
  2. LANOXIN [Suspect]
     Indication: ATRIAL FIBRILLATION
     Route: 048
     Dates: start: 20130101, end: 20130803
  3. TAPAZOLE [Concomitant]
     Indication: HYPERTHYROIDISM
  4. COUMADIN [Concomitant]
     Indication: ATRIAL FIBRILLATION

REACTIONS (2)
  - Atrioventricular block complete [Recovering/Resolving]
  - Hyperkalaemia [Recovering/Resolving]
